FAERS Safety Report 9950805 (Version 1)
Quarter: 2014Q1

REPORT INFORMATION
  Report Type: Spontaneous
  Country: FR (occurrence: FR)
  Receive Date: 20140304
  Receipt Date: 20140304
  Transmission Date: 20141002
  Serious: Yes (Hospitalization)
  Sender: FDA-Public Use
  Company Number: FR-PFIZER INC-2014056276

PATIENT
  Age: 72 Year
  Sex: Female

DRUGS (9)
  1. TAZOCILLINE [Suspect]
     Dosage: 4 G, 3X/DAY
     Route: 042
     Dates: start: 20131128, end: 20131226
  2. DALACINE [Suspect]
     Dosage: 600 MG, 3X/DAY
     Route: 048
     Dates: start: 20131218, end: 20131229
  3. CIPROFLOXACIN HCL [Suspect]
     Dosage: 500 MG, 2X/DAY
     Route: 048
     Dates: start: 20131128, end: 20131229
  4. EUPANTOL [Concomitant]
     Dosage: 20 MG, 1X/DAY
     Route: 048
  5. LYRICA [Concomitant]
     Dosage: 50 MG, 2X/DAY
     Route: 048
  6. AMLODIPINE [Concomitant]
     Dosage: 10 MG, 1X/DAY
     Route: 048
  7. DOMPERIDONE [Concomitant]
     Dosage: 10 MG, AS NEEDED
     Route: 048
  8. MODOPAR [Concomitant]
     Dosage: 100MG/25MG
     Route: 048
  9. TRIVASTAL [Concomitant]
     Dosage: 50 MG, UNK
     Route: 048

REACTIONS (2)
  - Neutropenia [Recovered/Resolved]
  - Toxic skin eruption [Recovered/Resolved]
